FAERS Safety Report 8514093-3 (Version None)
Quarter: 2012Q3

REPORT INFORMATION
  Report Type: 
  Country: None (occurrence: None)
  Receive Date: 20120717
  Receipt Date: 20120710
  Transmission Date: 20120928
  Serious: No
  Sender: FDA-Public Use
  Company Number: US-009507513-1207USA002619

PATIENT

DRUGS (1)
  1. NUVARING [Suspect]
     Indication: CONTRACEPTION
     Dosage: 1 DF, UNK
     Dates: start: 20120512

REACTIONS (6)
  - WEIGHT INCREASED [None]
  - MOOD SWINGS [None]
  - BREAST TENDERNESS [None]
  - DYSPNOEA [None]
  - BACK PAIN [None]
  - ANXIETY [None]
